FAERS Safety Report 11239567 (Version 1)
Quarter: 2015Q3

REPORT INFORMATION
  Report Type: Spontaneous
  Country: US (occurrence: US)
  Receive Date: 20150706
  Receipt Date: 20150706
  Transmission Date: 20151125
  Serious: Yes (Death)
  Sender: FDA-Public Use
  Company Number: US-CIPLA LTD.-2015US05275

PATIENT

DRUGS (3)
  1. SERTRALINE [Suspect]
     Active Substance: SERTRALINE HYDROCHLORIDE
  2. FENTANYL TRANSDERMAL SYSTEM [Suspect]
     Active Substance: FENTANYL
  3. ACETAMINOPHEN. [Suspect]
     Active Substance: ACETAMINOPHEN

REACTIONS (1)
  - Completed suicide [Fatal]
